FAERS Safety Report 11969089 (Version 3)
Quarter: 2016Q1

REPORT INFORMATION
  Report Type: Report from Study
  Country: DE (occurrence: DE)
  Receive Date: 20160128
  Receipt Date: 20160315
  Transmission Date: 20160526
  Serious: Yes (Hospitalization)
  Sender: FDA-Public Use
  Company Number: DE-BEH-2016058081

PATIENT
  Age: 75 Year
  Sex: Female
  Weight: 68 kg

DRUGS (15)
  1. DIGITOXIN [Concomitant]
     Active Substance: DIGITOXIN
  2. METOPROLOL. [Concomitant]
     Active Substance: METOPROLOL
  3. PROTAPHANE [Concomitant]
     Active Substance: INSULIN HUMAN
  4. HUMALOG [Concomitant]
     Active Substance: INSULIN LISPRO
  5. LYRICA [Concomitant]
     Active Substance: PREGABALIN
  6. TORASEMIDE [Concomitant]
     Active Substance: TORSEMIDE
  7. RAMIPRIL. [Concomitant]
     Active Substance: RAMIPRIL
  8. PRIVIGEN [Suspect]
     Active Substance: HUMAN IMMUNOGLOBULIN G
     Indication: INFECTION
     Dosage: INFUSION RATE 3.0 ML/MIN
     Route: 042
     Dates: start: 20151207, end: 20151207
  9. PANTOZOLE [Concomitant]
     Active Substance: PANTOPRAZOLE SODIUM
  10. RIVAROXABAN [Concomitant]
     Active Substance: RIVAROXABAN
  11. LANTUS [Concomitant]
     Active Substance: INSULIN GLARGINE
     Dosage: 10 IU IN THE EVENING
  12. PRIVIGEN [Suspect]
     Active Substance: HUMAN IMMUNOGLOBULIN G
     Indication: HYPOGAMMAGLOBULINAEMIA
     Dates: start: 20140820
  13. EPLERENONE. [Concomitant]
     Active Substance: EPLERENONE
  14. PRIVIGEN [Suspect]
     Active Substance: HUMAN IMMUNOGLOBULIN G
     Indication: CHRONIC LYMPHOCYTIC LEUKAEMIA
     Dosage: INFUSION RATE 3.0 ML/MIN
     Route: 042
     Dates: start: 20151207, end: 20151207
  15. METFORMIN [Concomitant]
     Active Substance: METFORMIN HYDROCHLORIDE

REACTIONS (4)
  - Pancreatic insufficiency [Unknown]
  - Diarrhoea [Recovered/Resolved]
  - General physical health deterioration [Unknown]
  - Abnormal loss of weight [Unknown]

NARRATIVE: CASE EVENT DATE: 20151228
